FAERS Safety Report 9158509 (Version 1)
Quarter: 2013Q1

REPORT INFORMATION
  Report Type: Spontaneous
  Country: US (occurrence: US)
  Receive Date: 20130312
  Receipt Date: 20130312
  Transmission Date: 20140127
  Serious: No
  Sender: FDA-Public Use
  Company Number: US-BAYER-2013-027166

PATIENT
  Sex: Female

DRUGS (5)
  1. BETASERON [Suspect]
     Dosage: 0.25 MG, QOD
     Route: 058
  2. MULTIVITAMIN [Concomitant]
  3. ADVIL [Concomitant]
  4. FEMARA [Concomitant]
  5. FOSAMAX [Concomitant]

REACTIONS (2)
  - Influenza like illness [Unknown]
  - Feeling cold [Unknown]
